FAERS Safety Report 13170961 (Version 3)
Quarter: 2017Q1

REPORT INFORMATION
  Report Type: Report from Study
  Country: US (occurrence: US)
  Receive Date: 20170201
  Receipt Date: 20170317
  Transmission Date: 20170428
  Serious: Yes (Other)
  Sender: FDA-Public Use
  Company Number: PHEH2017US002533

PATIENT
  Age: 4 Year
  Sex: Male
  Weight: 17.2 kg

DRUGS (2)
  1. ILARIS [Suspect]
     Active Substance: CANAKINUMAB
     Dosage: UNK
     Route: 058
     Dates: start: 20170207
  2. ILARIS [Suspect]
     Active Substance: CANAKINUMAB
     Indication: JUVENILE IDIOPATHIC ARTHRITIS
     Dosage: 66 MG, EVERY 28 DAYS
     Route: 058
     Dates: end: 201701

REACTIONS (5)
  - Gait disturbance [Unknown]
  - Juvenile idiopathic arthritis [Recovered/Resolved with Sequelae]
  - Influenza [Unknown]
  - Ear infection [Unknown]
  - Musculoskeletal stiffness [Unknown]

NARRATIVE: CASE EVENT DATE: 20170103
